FAERS Safety Report 8774636 (Version 1)
Quarter: 2012Q4

REPORT INFORMATION
  Report Type: 
  Country: BR (occurrence: BR)
  Receive Date: 20120907
  Receipt Date: 20120907
  Transmission Date: 20130627
  Serious: Yes (Other)
  Sender: FDA-Public Use
  Company Number: BR-AMGEN-BRASP2012055920

PATIENT
  Age: 60 Year
  Sex: Female
  Weight: 50.98 kg

DRUGS (5)
  1. ENBREL [Suspect]
     Indication: RHEUMATOID ARTHRITIS
     Dosage: 50 mg, weekly
     Route: 058
     Dates: start: 201201, end: 201205
  2. METHOTREXATE [Concomitant]
     Dosage: 4 tablets, 2x/week
  3. PREDNISONE [Concomitant]
     Dosage: 5 mg, UNK
  4. OSCAL D                            /00944201/ [Concomitant]
     Dosage: UNK
  5. FOLIC ACID [Concomitant]
     Dosage: UNK

REACTIONS (12)
  - Immunodeficiency [Unknown]
  - Therapeutic response decreased [Unknown]
  - Tachycardia [Unknown]
  - Hypertension [Unknown]
  - Vision blurred [Unknown]
  - Nail disorder [Unknown]
  - Alopecia [Unknown]
  - Dry skin [Unknown]
  - Cataract [Unknown]
  - Feeling abnormal [Unknown]
  - Hypersensitivity [Unknown]
  - Rash [Unknown]
